FAERS Safety Report 5798825-3 (Version None)
Quarter: 2008Q3

REPORT INFORMATION
  Report Type: 
  Country: None (occurrence: None)
  Receive Date: 20080702
  Receipt Date: 20080626
  Transmission Date: 20090109
  Serious: Yes (Other)
  Sender: FDA-Public Use
  Company Number: US-ABBOTT-08P-163-0459827-00

PATIENT
  Age: 14 Year
  Sex: Male

DRUGS (1)
  1. DEPAKOTE ER [Suspect]
     Indication: BIPOLAR DISORDER
     Route: 048
     Dates: start: 20080301, end: 20080601

REACTIONS (2)
  - HIP FRACTURE [None]
  - IMPAIRED HEALING [None]
